FAERS Safety Report 5177555-5 (Version None)
Quarter: 2006Q4

REPORT INFORMATION
  Report Type: 
  Country: None (occurrence: None)
  Receive Date: 20061218
  Receipt Date: 20061205
  Transmission Date: 20070319
  Serious: Yes (Death)
  Sender: FDA-Public Use
  Company Number: AT-BOEHRINGER INGELHEIM GMBH, GERMANY-2006-BE-00088BE

PATIENT
  Sex: Female
  Weight: 48 kg

DRUGS (3)
  1. APTIVUS [Suspect]
     Indication: ACQUIRED IMMUNODEFICIENCY SYNDROME
     Route: 048
     Dates: start: 20060217, end: 20060601
  2. RITONAVIR [Suspect]
     Indication: ACQUIRED IMMUNODEFICIENCY SYNDROME
     Route: 048
     Dates: start: 20060217, end: 20060601
  3. TRUVADA [Concomitant]
     Indication: ACQUIRED IMMUNODEFICIENCY SYNDROME
     Dosage: 245/200 MG TENOFOVIR DISOPROXIL/EMTRICITABIN  1 F-TABL ENTH.:    245/200 MG TENOFOVIR EMTRICITABIN
     Route: 048
     Dates: start: 20060217, end: 20060725

REACTIONS (2)
  - COMA HEPATIC [None]
  - HEPATIC FUNCTION ABNORMAL [None]
